APPROVED DRUG PRODUCT: FLUPHENAZINE HYDROCHLORIDE
Active Ingredient: FLUPHENAZINE HYDROCHLORIDE
Strength: 2.5MG/ML
Dosage Form/Route: INJECTABLE;INJECTION
Application: A089556 | Product #001
Applicant: FRESENIUS KABI USA LLC
Approved: Apr 16, 1987 | RLD: No | RS: Yes | Type: RX